FAERS Safety Report 16839079 (Version 3)
Quarter: 2020Q3

REPORT INFORMATION
  Report Type: Spontaneous
  Country: US (occurrence: US)
  Receive Date: 20190923
  Receipt Date: 20200825
  Transmission Date: 20201102
  Serious: Yes (Disabling, Other)
  Sender: FDA-Public Use
  Company Number: US-GILEAD-2019-0429603

PATIENT
  Age: 60 Year
  Sex: Female
  Weight: 75.28 kg

DRUGS (17)
  1. SIMVASTATIN. [Concomitant]
     Active Substance: SIMVASTATIN
  2. AMITRIPTYLINE [Concomitant]
     Active Substance: AMITRIPTYLINE
  3. LORATADINE. [Concomitant]
     Active Substance: LORATADINE
     Indication: HYPERSENSITIVITY
  4. ROGAINE [Concomitant]
     Active Substance: MINOXIDIL
  5. METHYLPREDNISOLONE. [Concomitant]
     Active Substance: METHYLPREDNISOLONE
  6. HYDROCORTISONE. [Concomitant]
     Active Substance: HYDROCORTISONE
  7. CYCLOBENZAPRINE. [Concomitant]
     Active Substance: CYCLOBENZAPRINE
  8. TEMAZEPAM. [Concomitant]
     Active Substance: TEMAZEPAM
  9. VIREAD [Suspect]
     Active Substance: TENOFOVIR DISOPROXIL FUMARATE
     Indication: HEPATITIS B
     Dosage: UNK
     Route: 048
     Dates: start: 20120713, end: 20140801
  10. ROPINIROLE HCL [Concomitant]
     Active Substance: ROPINIROLE HYDROCHLORIDE
  11. BIMATOPROST. [Concomitant]
     Active Substance: BIMATOPROST
  12. BACLOFEN. [Concomitant]
     Active Substance: BACLOFEN
  13. SPIRONOLACTONE. [Concomitant]
     Active Substance: SPIRONOLACTONE
  14. ROSUVASTATIN. [Concomitant]
     Active Substance: ROSUVASTATIN
  15. CLOBETASOL [Concomitant]
     Active Substance: CLOBETASOL
  16. DOXYCYCLINE. [Concomitant]
     Active Substance: DOXYCYCLINE
  17. BIOTIN [Concomitant]
     Active Substance: BIOTIN

REACTIONS (15)
  - Quality of life decreased [Not Recovered/Not Resolved]
  - Migraine [Unknown]
  - Impaired work ability [Unknown]
  - Osteopenia [Not Recovered/Not Resolved]
  - Pain [Not Recovered/Not Resolved]
  - Osteoporosis [Recovered/Resolved]
  - General physical health deterioration [Unknown]
  - Anhedonia [Not Recovered/Not Resolved]
  - Emotional distress [Not Recovered/Not Resolved]
  - Multiple fractures [Unknown]
  - Foot fracture [Unknown]
  - Anxiety [Not Recovered/Not Resolved]
  - Economic problem [Not Recovered/Not Resolved]
  - Insomnia [Not Recovered/Not Resolved]
  - Depression [Unknown]

NARRATIVE: CASE EVENT DATE: 20130626
